FAERS Safety Report 25912372 (Version 1)
Quarter: 2025Q4

REPORT INFORMATION
  Report Type: Report from Study
  Country: US (occurrence: US)
  Receive Date: 20251013
  Receipt Date: 20251013
  Transmission Date: 20260117
  Serious: Yes (Other)
  Sender: ABBVIE
  Company Number: US-ABBVIE-6496430

PATIENT
  Age: 40 Year
  Sex: Female

DRUGS (3)
  1. RINVOQ [Suspect]
     Active Substance: UPADACITINIB
     Indication: Crohn^s disease
     Dosage: STRENGTH 30 MG
     Route: 048
     Dates: start: 2019, end: 2021
  2. RINVOQ [Suspect]
     Active Substance: UPADACITINIB
     Indication: Crohn^s disease
     Dosage: STRENGTH 30 MG
     Route: 048
     Dates: start: 2021, end: 202506
  3. RINVOQ [Suspect]
     Active Substance: UPADACITINIB
     Indication: Crohn^s disease
     Dosage: START DATE 2025?STRENGTH 30 MG
     Route: 048

REACTIONS (11)
  - Hysterectomy [Unknown]
  - Multiple allergies [Unknown]
  - Therapeutic response unexpected [Unknown]
  - Upper-airway cough syndrome [Unknown]
  - Hordeolum [Unknown]
  - Malaise [Unknown]
  - Eye pruritus [Unknown]
  - Sneezing [Unknown]
  - Swelling face [Unknown]
  - Frequent bowel movements [Recovered/Resolved]
  - Diarrhoea [Recovered/Resolved]

NARRATIVE: CASE EVENT DATE: 20210101
